FAERS Safety Report 4558996-3 (Version None)
Quarter: 2005Q1

REPORT INFORMATION
  Report Type: 
  Country: None (occurrence: None)
  Receive Date: 20050124
  Receipt Date: 20050111
  Transmission Date: 20050727
  Serious: Yes (Hospitalization)
  Sender: FDA-Public Use
  Company Number: PHBS2005JP00805

PATIENT
  Age: 50 Year
  Sex: Male

DRUGS (5)
  1. LEXOTAN [Suspect]
     Dosage: 1 MG/DAY
     Route: 048
     Dates: start: 20041116, end: 20050111
  2. ALDOMET [Suspect]
     Dosage: 750 TO 1500 MG/DAY
     Route: 048
     Dates: start: 20041116, end: 20050111
  3. CORINAE L [Concomitant]
     Dosage: 40 MG/DAY
     Route: 048
     Dates: start: 20041116
  4. ZESTRIL [Concomitant]
     Dosage: 20 MG/DAY
     Route: 048
     Dates: start: 20041019
  5. LOPRESSOR [Suspect]
     Dosage: 120 MG/DAY
     Route: 048
     Dates: start: 20041201

REACTIONS (5)
  - ASTHENIA [None]
  - DIFFICULTY IN WALKING [None]
  - HEPATIC FUNCTION ABNORMAL [None]
  - RENAL IMPAIRMENT [None]
  - RHABDOMYOLYSIS [None]
